FAERS Safety Report 7535434-X (Version None)
Quarter: 2011Q2

REPORT INFORMATION
  Report Type: 
  Country: None (occurrence: None)
  Receive Date: 20110609
  Receipt Date: 20080708
  Transmission Date: 20111010
  Serious: Yes (Other)
  Sender: FDA-Public Use
  Company Number: PHHY2008IE14005

PATIENT

DRUGS (4)
  1. ABILIFY [Concomitant]
  2. CHLORPROMAZINE HCL [Concomitant]
  3. CLOZAPINE [Suspect]
     Indication: SCHIZOPHRENIA
     Dosage: 600 MG, UNK
     Dates: start: 20050920
  4. AMISULPRIDE [Suspect]

REACTIONS (3)
  - PSYCHOTIC DISORDER [None]
  - SELF INJURIOUS BEHAVIOUR [None]
  - DRUG INEFFECTIVE [None]
